FAERS Safety Report 9604529 (Version 1)
Quarter: 2013Q4

REPORT INFORMATION
  Report Type: Spontaneous
  Country: GB (occurrence: GB)
  Receive Date: 20131008
  Receipt Date: 20131008
  Transmission Date: 20140711
  Serious: Yes (Hospitalization, Other)
  Sender: FDA-Public Use
  Company Number: GB-009507513-1310GBR000383

PATIENT
  Age: 41 Year
  Sex: Female
  Weight: 50 kg

DRUGS (8)
  1. RIBAVIRIN [Suspect]
     Indication: HEPATITIS C
     Dosage: UNK
     Route: 048
     Dates: start: 20130219
  2. RIBAVIRIN [Suspect]
     Dosage: 400 MG, QD
     Route: 048
     Dates: start: 20130319
  3. TELAPREVIR [Suspect]
     Indication: HEPATITIS C
     Dosage: 750 MG, 3 IN 1 DAY
     Route: 048
     Dates: start: 20130219, end: 20130416
  4. PEGINTERFERON ALFA-2B [Suspect]
     Indication: HEPATITIS C
     Dosage: UNK
     Route: 058
     Dates: start: 20130219
  5. AKWA TEARS LUBRICANT EYE DROPS [Concomitant]
     Dosage: 2 IN 1 DAY
     Route: 061
     Dates: start: 20130219
  6. METOCLOPRAMIDE [Concomitant]
     Dosage: 10 MG, 2 IN 1 DAY
     Dates: start: 20130305
  7. ANUSOL (BISMUTH OXIDE (+) BISMUTH SUBGALLATE (+) PERUVIAN BALSAM (+) Z [Concomitant]
     Dosage: , 3 IN 1 DAY
     Route: 061
     Dates: start: 20130319
  8. TRAMADOL HYDROCHLORIDE [Concomitant]
     Indication: PRODUCT USED FOR UNKNOWN INDICATION

REACTIONS (11)
  - Anaemia [Recovered/Resolved]
  - Blood potassium decreased [Not Recovered/Not Resolved]
  - Epistaxis [Recovered/Resolved]
  - Platelet count decreased [Unknown]
  - Restless legs syndrome [Unknown]
  - Thirst [Unknown]
  - Insomnia [Unknown]
  - Skin burning sensation [Unknown]
  - Pruritus [Unknown]
  - Nausea [Recovered/Resolved]
  - Blood count abnormal [Unknown]
